FAERS Safety Report 6858171-3 (Version None)
Quarter: 2010Q3

REPORT INFORMATION
  Report Type: 
  Country: None (occurrence: None)
  Receive Date: 20100719
  Receipt Date: 20080129
  Transmission Date: 20110219
  Serious: No
  Sender: FDA-Public Use
  Company Number: US-PFIZER INC-2008011559

PATIENT
  Sex: Female
  Weight: 83.9 kg

DRUGS (4)
  1. CHANTIX [Suspect]
     Indication: SMOKING CESSATION THERAPY
  2. LORTAB [Interacting]
     Indication: FIBROMYALGIA
  3. LORTAB [Interacting]
     Indication: PAIN
  4. XANAX [Concomitant]

REACTIONS (3)
  - DRUG INTERACTION [None]
  - FIBROMYALGIA [None]
  - PAIN [None]
